FAERS Safety Report 7314115-1 (Version None)
Quarter: 2011Q1

REPORT INFORMATION
  Report Type: 
  Country: None (occurrence: None)
  Receive Date: 20110225
  Receipt Date: 20100510
  Transmission Date: 20110831
  Serious: No
  Sender: FDA-Public Use
  Company Number: US-MYLANLABS-2010S1008062

PATIENT
  Age: 40 Year
  Sex: Female

DRUGS (2)
  1. AMNESTEEM [Suspect]
     Indication: KERATOSIS FOLLICULAR
     Route: 048
     Dates: start: 20100401, end: 20100504
  2. AMNESTEEM [Suspect]
     Route: 048
     Dates: start: 20100401, end: 20100504

REACTIONS (3)
  - DIARRHOEA [None]
  - NAUSEA [None]
  - VOMITING [None]
